FAERS Safety Report 4881425-7 (Version None)
Quarter: 2006Q1

REPORT INFORMATION
  Report Type: 
  Country: None (occurrence: None)
  Receive Date: 20060116
  Receipt Date: 20051219
  Transmission Date: 20060701
  Serious: Yes (Other)
  Sender: FDA-Public Use
  Company Number: GB-GILEAD-2005-0009033

PATIENT
  Age: 37 Year
  Sex: Male
  Weight: 78 kg

DRUGS (5)
  1. TRUVADA [Suspect]
     Route: 048
     Dates: start: 20051125
  2. FUZEON [Suspect]
     Route: 058
     Dates: start: 20051125
  3. NORVIR [Suspect]
     Route: 048
     Dates: start: 20051125
  4. APTIVUS [Suspect]
     Route: 048
     Dates: start: 20051125
  5. DAPSONE [Concomitant]
     Route: 048
     Dates: start: 20041201

REACTIONS (2)
  - SLEEP DISORDER [None]
  - TINNITUS [None]
